FAERS Safety Report 6784587-X (Version None)
Quarter: 2010Q2

REPORT INFORMATION
  Report Type: 
  Country: None (occurrence: None)
  Receive Date: 20100622
  Receipt Date: 20100617
  Transmission Date: 20101027
  Serious: Yes (Hospitalization)
  Sender: FDA-Public Use
  Company Number: A0860640D

PATIENT
  Age: 63 Year
  Sex: Female
  Weight: 59.4 kg

DRUGS (17)
  1. MELPHALAN HYDROCHLORIDE [Suspect]
     Indication: AMYLOIDOSIS
     Dosage: 50MGM2 CYCLIC
     Dates: start: 20100302, end: 20100303
  2. BORTEZOMIB [Suspect]
     Indication: AMYLOIDOSIS
     Dosage: 1.3MGM2 CYCLIC
     Dates: start: 20100510, end: 20100520
  3. DEXAMETHASONE ACETATE [Suspect]
     Indication: AMYLOIDOSIS
     Dosage: 20MG CYCLIC
     Dates: start: 20100510, end: 20100521
  4. BENZONATATE [Concomitant]
  5. CODEINE SUL TAB [Concomitant]
  6. METOCLOPRAMIDE [Concomitant]
  7. POLYETHYLENE GLYCOL [Concomitant]
  8. COLACE [Concomitant]
  9. SPIRONOLACTONE [Concomitant]
  10. ROSUVASTATIN [Concomitant]
  11. ACYCLOVIR [Concomitant]
  12. METOPROLOL TARTRATE [Concomitant]
  13. OMEPRAZOLE [Concomitant]
  14. POTASSIUM CHLORIDE [Concomitant]
  15. MAGNESIUM [Concomitant]
  16. AMIODARONE [Concomitant]
  17. CALCIUM WITH VITAMIN D [Concomitant]

REACTIONS (4)
  - DEEP VEIN THROMBOSIS [None]
  - HYPOTENSION [None]
  - INFECTION [None]
  - OEDEMA PERIPHERAL [None]
